FAERS Safety Report 21979993 (Version 5)
Quarter: 2024Q4

REPORT INFORMATION
  Report Type: Spontaneous
  Country: US (occurrence: US)
  Receive Date: 20230210
  Receipt Date: 20241128
  Transmission Date: 20250115
  Serious: Yes (Other)
  Sender: PFIZER
  Company Number: US-PFIZER INC-2020037942

PATIENT
  Age: 83 Year
  Sex: Male
  Weight: 80.726 kg

DRUGS (2)
  1. VYNDAMAX [Suspect]
     Active Substance: TAFAMIDIS
     Indication: Amyloidosis
     Dosage: 61 MG, 1X/DAY (ONE 61 MG TAFAMIDIS CAPSULE ORALLY ONCE DAILY)
     Route: 048
     Dates: start: 2020
  2. VYNDAMAX [Suspect]
     Active Substance: TAFAMIDIS
     Indication: Cardiac amyloidosis

REACTIONS (8)
  - Amyloidosis [Unknown]
  - Condition aggravated [Unknown]
  - Neuropathy peripheral [Not Recovered/Not Resolved]
  - Gait inability [Not Recovered/Not Resolved]
  - Peripheral swelling [Not Recovered/Not Resolved]
  - Pain in extremity [Unknown]
  - Balance disorder [Unknown]
  - Erythema [Unknown]

NARRATIVE: CASE EVENT DATE: 20231001
